FAERS Safety Report 18062098 (Version 2)
Quarter: 2020Q4

REPORT INFORMATION
  Report Type: Report from Study
  Country: GB (occurrence: ZA)
  Receive Date: 20200723
  Receipt Date: 20201001
  Transmission Date: 20210113
  Serious: Yes (Other)
  Sender: FDA-Public Use
  Company Number: GB-GLAXOSMITHKLINE-GB2020GSK135918

PATIENT

DRUGS (6)
  1. TENOFOVIR DISOPROXIL FUMARATE. [Suspect]
     Active Substance: TENOFOVIR DISOPROXIL FUMARATE
     Indication: CHRONIC HEPATITIS B
  2. LAMIVUDINE. [Suspect]
     Active Substance: LAMIVUDINE
     Indication: CHRONIC HEPATITIS B
  3. LAMIVUDINE. [Suspect]
     Active Substance: LAMIVUDINE
     Indication: HIV INFECTION
  4. EMTRICITABINE [Suspect]
     Active Substance: EMTRICITABINE
     Indication: HIV INFECTION
  5. EMTRICITABINE [Suspect]
     Active Substance: EMTRICITABINE
     Indication: CHRONIC HEPATITIS B
  6. TENOFOVIR DISOPROXIL FUMARATE. [Suspect]
     Active Substance: TENOFOVIR DISOPROXIL FUMARATE
     Indication: HIV INFECTION

REACTIONS (6)
  - Virologic failure [Unknown]
  - Viral mutation identified [Unknown]
  - Drug ineffective [Unknown]
  - Viraemia [Unknown]
  - Pathogen resistance [Unknown]
  - Drug resistance [Unknown]
